FAERS Safety Report 5141788-4 (Version None)
Quarter: 2006Q4

REPORT INFORMATION
  Report Type: 
  Country: None (occurrence: None)
  Receive Date: 20061027
  Receipt Date: 20061017
  Transmission Date: 20070319
  Serious: Yes (Hospitalization)
  Sender: FDA-Public Use
  Company Number: 2006121235

PATIENT
  Age: 50 Year
  Sex: Female
  Weight: 65 kg

DRUGS (4)
  1. EXEMESTANE [Suspect]
     Indication: BREAST CANCER
     Dosage: 25 MG (25 MG, FREQUENCY: DAY 1 INTERVAL: 3 WEEKS), INTRAVENOUS
     Route: 042
     Dates: start: 20060922
  2. DOXORUBICIN HCL [Suspect]
     Indication: BREAST CANCER
     Dosage: 105 MG (50 MG, FREQUENCY: DAY 1 INTERVAL: 3 WEEKS), INTRAVENOUS
     Route: 042
     Dates: start: 20060922
  3. ENANTONE (LEUPROERELIN) [Concomitant]
  4. PACLITAXEL [Suspect]
     Indication: BREAST CANCER
     Dosage: 350 MG (300 MG FREQUENCY:DAY 1 INTERVAL 3 WEEK) INTRAVENOUS
     Route: 042
     Dates: start: 20060922

REACTIONS (1)
  - FEBRILE NEUTROPENIA [None]
